FAERS Safety Report 5335637-9 (Version None)
Quarter: 2007Q2

REPORT INFORMATION
  Report Type: 
  Country: None (occurrence: None)
  Receive Date: 20070322
  Receipt Date: 20070105
  Transmission Date: 20071010
  Serious: No
  Sender: FDA-Public Use
  Company Number: 2007US000057

PATIENT
  Age: 76 Year
  Sex: Female

DRUGS (5)
  1. VESICARE [Suspect]
     Indication: HYPERTONIC BLADDER
     Dosage: UNK MG, ORAL
     Route: 048
     Dates: start: 20070103
  2. ZYRTEC [Concomitant]
  3. FLONASE [Concomitant]
  4. TYLENOL ALLERGY SINUS (PSEUDOEPHEDRINE HYDROCHLORIDE, CHLORPHENAMINE M [Concomitant]
  5. LEVOTHYROXINE SODIUM [Concomitant]

REACTIONS (1)
  - BLOOD GLUCOSE INCREASED [None]
